FAERS Safety Report 7562150-0 (Version None)
Quarter: 2011Q2

REPORT INFORMATION
  Report Type: 
  Country: None (occurrence: None)
  Receive Date: 20110620
  Receipt Date: 20110620
  Transmission Date: 20111010
  Serious: Yes (Hospitalization)
  Sender: FDA-Public Use
  Company Number: None

PATIENT
  Age: 57 Year
  Sex: Female
  Weight: 46.0401 kg

DRUGS (10)
  1. COLESTID [Concomitant]
  2. ZOFRAN [Concomitant]
  3. COMPAZINE [Concomitant]
  4. ZANTAC [Concomitant]
  5. CARBOPLATIN [Suspect]
     Indication: NON-SMALL CELL LUNG CANCER
     Dosage: AUC 6
     Dates: start: 20110404, end: 20110404
  6. AVASTIN [Suspect]
     Indication: NON-SMALL CELL LUNG CANCER
     Dosage: 15 MG/KG
     Dates: start: 20110321, end: 20110404
  7. CALCIUM +D [Concomitant]
  8. DECADRON [Concomitant]
  9. ABRAXANE [Suspect]
     Indication: NON-SMALL CELL LUNG CANCER
     Dosage: 100 MG/M2
     Dates: start: 20110404, end: 20110404
  10. ATIVAN [Concomitant]

REACTIONS (4)
  - GASTROINTESTINAL HAEMORRHAGE [None]
  - NAUSEA [None]
  - BLOOD BILIRUBIN INCREASED [None]
  - HAEMORRHOIDS [None]
